FAERS Safety Report 9230330 (Version 2)
Quarter: 2013Q2

REPORT INFORMATION
  Report Type: Report from Study
  Country: CO (occurrence: CO)
  Receive Date: 20130415
  Receipt Date: 20130422
  Transmission Date: 20140414
  Serious: Yes (Hospitalization)
  Sender: FDA-Public Use
  Company Number: PHHY2013CO035635

PATIENT
  Age: 65 Year
  Sex: Female

DRUGS (4)
  1. SANDOSTATIN LAR [Suspect]
     Dosage: 30 MG, UNK
     Route: 030
     Dates: start: 20110426, end: 20130218
  2. LOSARDEX [Concomitant]
     Dosage: UNK UKN, UNK
  3. JANUMET [Concomitant]
     Dosage: UNK UKN, UNK
  4. ACETAMINOPHEN [Concomitant]
     Dosage: UNK UKN, UNK

REACTIONS (7)
  - Chills [Recovered/Resolved]
  - Loss of consciousness [Recovered/Resolved]
  - Delirium [Recovered/Resolved]
  - Shock [Recovered/Resolved]
  - Urinary tract infection [Recovered/Resolved]
  - Gastritis [Unknown]
  - Abdominal pain upper [Unknown]
